FAERS Safety Report 16380622 (Version 4)
Quarter: 2024Q4

REPORT INFORMATION
  Report Type: Spontaneous
  Country: FR (occurrence: FR)
  Receive Date: 20190601
  Receipt Date: 20241015
  Transmission Date: 20250115
  Serious: Yes (Congenital Anomaly, Other)
  Sender: AUROBINDO
  Company Number: FR-AUROBINDO-AUR-APL-2019-032122

PATIENT

DRUGS (5)
  1. ABACAVIR [Suspect]
     Active Substance: ABACAVIR
     Indication: HIV infection
     Dosage: UNK
     Route: 064
  2. LAMIVUDINE [Suspect]
     Active Substance: LAMIVUDINE
     Indication: HIV infection
     Dosage: UNK
     Route: 064
  3. LAMIVUDINE AND ZIDOVUDINE [Suspect]
     Active Substance: LAMIVUDINE\ZIDOVUDINE
     Indication: HIV infection
     Dosage: UNK
     Route: 064
  4. NEVIRAPINE [Suspect]
     Active Substance: NEVIRAPINE
     Indication: HIV infection
     Dosage: UNK
     Route: 064
  5. ZIDOVUDINE [Suspect]
     Active Substance: ZIDOVUDINE
     Indication: Product used for unknown indication
     Dosage: UNK
     Route: 064

REACTIONS (4)
  - Astrocytoma malignant [Unknown]
  - Congenital white blood cell disorder [Unknown]
  - Genetic polymorphism [Unknown]
  - Foetal exposure during pregnancy [Unknown]
